FAERS Safety Report 25141186 (Version 4)
Quarter: 2025Q3

REPORT INFORMATION
  Report Type: Spontaneous
  Country: CA (occurrence: CA)
  Receive Date: 20250331
  Receipt Date: 20250714
  Transmission Date: 20251020
  Serious: Yes (Life-Threatening, Hospitalization, Other)
  Sender: BAYER HEALTHCARE PHARMACEUTICALS INC.
  Company Number: CA-BAYER-2025A026489

PATIENT
  Age: 48 Year
  Sex: Female

DRUGS (1)
  1. MIRENA [Suspect]
     Active Substance: LEVONORGESTREL
     Indication: Heavy menstrual bleeding
     Dosage: 20?G/DAY
     Route: 015
     Dates: start: 20180430, end: 20250207

REACTIONS (7)
  - Haemoglobin decreased [None]
  - Uterine leiomyoma [None]
  - Embedded device [None]
  - Complication of device removal [None]
  - Heavy menstrual bleeding [Recovered/Resolved]
  - Abdominal pain lower [Recovering/Resolving]
  - Malaise [None]

NARRATIVE: CASE EVENT DATE: 20220301
